FAERS Safety Report 9628265 (Version 1)
Quarter: 2013Q4

REPORT INFORMATION
  Report Type: Spontaneous
  Country: AT (occurrence: AT)
  Receive Date: 20131017
  Receipt Date: 20131017
  Transmission Date: 20140711
  Serious: Yes (Life-Threatening, Hospitalization)
  Sender: FDA-Public Use
  Company Number: AT-ASTRAZENECA-2013SE75774

PATIENT
  Age: 24 Year
  Sex: Male

DRUGS (12)
  1. SEROQUEL XR [Suspect]
     Dosage: 50-400 MG, DOSE INCREASED IN THE COURSE
     Route: 048
     Dates: start: 2009
  2. SEROQUEL XR [Interacting]
     Route: 048
     Dates: end: 20130706
  3. DEPAKINE [Interacting]
     Dosage: 600 MG-900 MG, DOSE INCREASED IN THE COURSE
     Route: 065
     Dates: start: 2009, end: 20130624
  4. DEPAKINE [Interacting]
     Route: 065
     Dates: start: 20130626, end: 20130706
  5. TEMESTA [Concomitant]
     Dosage: 3.75
     Dates: end: 20130626
  6. TEMESTA [Concomitant]
     Dosage: 2.5
     Dates: start: 20130628, end: 20130629
  7. TEMESTA [Concomitant]
     Dosage: 2
     Dates: start: 20130630, end: 20130702
  8. TEMESTA [Concomitant]
     Dosage: 2.5
     Dates: start: 20130703, end: 20130703
  9. TEMESTA [Concomitant]
     Dosage: 1.5
     Dates: start: 20130704, end: 20130704
  10. TEMESTA [Concomitant]
     Dosage: 1
     Dates: start: 20130705, end: 20130705
  11. TEMESTA [Concomitant]
     Dosage: 0.5
     Dates: start: 20130706, end: 20130706
  12. TEMESTA [Concomitant]
     Dates: start: 20130707, end: 20130707

REACTIONS (4)
  - Encephalopathy [Recovered/Resolved]
  - Hyperammonaemia [Recovered/Resolved]
  - Toxicity to various agents [Unknown]
  - Drug interaction [Unknown]
